FAERS Safety Report 7913565 (Version 4)
Quarter: 2012Q4

REPORT INFORMATION
  Report Type: 
  Country: US (occurrence: US)
  Receive Date: 20110425
  Receipt Date: 20121204
  Transmission Date: 20130627
  Serious: No
  Sender: FDA-Public Use
  Company Number: US-ASTRAZENECA-2011SE21826

PATIENT
  Age: 82 Year
  Sex: Female

DRUGS (7)
  1. SYMBICORT [Suspect]
     Route: 055
  2. NEXIUM [Suspect]
     Indication: ASTHMA
     Route: 048
  3. NEXIUM [Suspect]
     Indication: COUGH
     Route: 048
  4. CRESTOR [Suspect]
     Route: 048
  5. LIPITOR [Concomitant]
     Indication: BLOOD CHOLESTEROL INCREASED
  6. ZOCOR [Concomitant]
     Indication: BLOOD CHOLESTEROL INCREASED
  7. ZETIA [Concomitant]
     Indication: BLOOD CHOLESTEROL INCREASED

REACTIONS (10)
  - Malaise [Unknown]
  - Malaise [Unknown]
  - Tremor [Unknown]
  - Asthma [Unknown]
  - Cough [Unknown]
  - Adverse drug reaction [Unknown]
  - Gastrooesophageal reflux disease [Unknown]
  - Pain [Unknown]
  - Off label use [Unknown]
  - Drug dose omission [Unknown]
